FAERS Safety Report 9743182 (Version 3)
Quarter: 2015Q3

REPORT INFORMATION
  Report Type: Spontaneous
  Country: US (occurrence: US)
  Receive Date: 20131210
  Receipt Date: 20150804
  Transmission Date: 20151125
  Serious: No
  Sender: FDA-Public Use
  Company Number: US-GILEAD-2009-0024347

PATIENT
  Age: 60 Year
  Sex: Female
  Weight: 57.15 kg

DRUGS (20)
  1. COUMADIN [Concomitant]
     Active Substance: WARFARIN SODIUM
  2. ZEMPLAR [Concomitant]
     Active Substance: PARICALCITOL
  3. SIMVASTATIN. [Concomitant]
     Active Substance: SIMVASTATIN
  4. PILOCAR [Concomitant]
  5. FISH OIL [Concomitant]
     Active Substance: FISH OIL
  6. INSULIN [Concomitant]
     Active Substance: INSULIN NOS
  7. LETAIRIS [Suspect]
     Active Substance: AMBRISENTAN
     Route: 048
     Dates: start: 20090225
  8. AMBIEN [Concomitant]
     Active Substance: ZOLPIDEM TARTRATE
  9. RENAGEL [Concomitant]
     Active Substance: SEVELAMER HYDROCHLORIDE
  10. PILOCARPINE. [Concomitant]
     Active Substance: PILOCARPINE
  11. ZOCOR [Concomitant]
     Active Substance: SIMVASTATIN
  12. LETAIRIS [Suspect]
     Active Substance: AMBRISENTAN
     Indication: PULMONARY ARTERIAL HYPERTENSION
     Route: 048
  13. PLAVIX [Concomitant]
     Active Substance: CLOPIDOGREL BISULFATE
  14. IRON [Concomitant]
     Active Substance: IRON
  15. VITAMIN D [Concomitant]
     Active Substance: CHOLECALCIFEROL
  16. ISOMETHEPTENE/DICLOFENAMIDE/PARACETAMOL [Concomitant]
  17. LANTUS [Concomitant]
     Active Substance: INSULIN GLARGINE
  18. NOVOLOG [Concomitant]
     Active Substance: INSULIN ASPART
  19. ZANTAC [Concomitant]
     Active Substance: RANITIDINE HYDROCHLORIDE
  20. SODIUM BICARBONATE. [Concomitant]
     Active Substance: SODIUM BICARBONATE

REACTIONS (3)
  - Dizziness [Recovering/Resolving]
  - Atrial fibrillation [Unknown]
  - Hypotension [Recovering/Resolving]
